FAERS Safety Report 6814149-7 (Version None)
Quarter: 2010Q3

REPORT INFORMATION
  Report Type: 
  Country: None (occurrence: None)
  Receive Date: 20100702
  Receipt Date: 20100429
  Transmission Date: 20110219
  Serious: No
  Sender: FDA-Public Use
  Company Number: A0857306A

PATIENT
  Age: 54 Year
  Sex: Female

DRUGS (3)
  1. ADVAIR DISKUS 100/50 [Suspect]
     Indication: WHEEZING
     Dosage: 1PUFF TWICE PER DAY
     Route: 055
     Dates: start: 20091001, end: 20091101
  2. ADVAIR DISKUS 100/50 [Suspect]
     Dosage: 2PUFF TWICE PER DAY
     Route: 055
     Dates: start: 20091101
  3. PRILOSEC [Concomitant]

REACTIONS (4)
  - CANDIDIASIS [None]
  - CHEST PAIN [None]
  - DYSPHONIA [None]
  - EPISTAXIS [None]
